FAERS Safety Report 9690928 (Version 1)
Quarter: 2013Q4

REPORT INFORMATION
  Report Type: Spontaneous
  Country: BR (occurrence: BR)
  Receive Date: 20131115
  Receipt Date: 20131115
  Transmission Date: 20140711
  Serious: Yes (Other)
  Sender: FDA-Public Use
  Company Number: BR-PFIZER INC-2013321680

PATIENT
  Age: 75 Year
  Sex: Female

DRUGS (3)
  1. XALATAN [Suspect]
     Dosage: UNK
  2. BRINZOLAMIDE [Suspect]
     Indication: GLAUCOMA
     Dosage: 1 DROP IN EACH EYE (UNSPECIFIED FREQUENCY)
     Route: 047
     Dates: start: 201308, end: 201310
  3. BRINZOLAMIDE [Suspect]
     Indication: INTRAOCULAR PRESSURE TEST

REACTIONS (4)
  - Dyspnoea [Recovering/Resolving]
  - Suffocation feeling [Recovering/Resolving]
  - Wheezing [Recovering/Resolving]
  - Feeling abnormal [Recovering/Resolving]
